FAERS Safety Report 4577489-0 (Version None)
Quarter: 2005Q1

REPORT INFORMATION
  Report Type: 
  Country: None (occurrence: None)
  Receive Date: 20050208
  Receipt Date: 20050118
  Transmission Date: 20050727
  Serious: Yes (Hospitalization)
  Sender: FDA-Public Use
  Company Number: 2005016259

PATIENT
  Sex: Female

DRUGS (3)
  1. ZYRTEC [Suspect]
     Indication: ILL-DEFINED DISORDER
     Dates: start: 20050101, end: 20050101
  2. BENADRYL ALLERGY RELIEF (ACRIVASTINE) [Suspect]
     Indication: HYPERSENSITIVITY
     Dosage: 8 MG (8 MG, 1 IN 1 D), ORAL
     Route: 048
  3. ACETAMINOPHEN [Concomitant]

REACTIONS (2)
  - DYSPNOEA [None]
  - RASH [None]
